FAERS Safety Report 18601344 (Version 1)
Quarter: 2020Q4

REPORT INFORMATION
  Report Type: Report from Study
  Country: CN (occurrence: CN)
  Receive Date: 20201210
  Receipt Date: 20201210
  Transmission Date: 20210114
  Serious: Yes (Death, Other)
  Sender: FDA-Public Use
  Company Number: CN-BAYER-2020-267126

PATIENT

DRUGS (3)
  1. MOXIFLOXACIN. [Suspect]
     Active Substance: MOXIFLOXACIN
     Indication: COVID-19
  2. MEROPENEM. [Concomitant]
     Active Substance: MEROPENEM
     Indication: COVID-19
  3. ARBIDOL [Concomitant]
     Active Substance: UMIFENOVIR
     Indication: COVID-19

REACTIONS (4)
  - Off label use [None]
  - Ventricular fibrillation [Fatal]
  - Electrocardiogram QT prolonged [None]
  - Product use in unapproved indication [None]

NARRATIVE: CASE EVENT DATE: 2020
